FAERS Safety Report 8980472 (Version 1)
Quarter: 2012Q4

REPORT INFORMATION
  Report Type: 
  Country: DE (occurrence: DE)
  Receive Date: 20121221
  Receipt Date: 20121221
  Transmission Date: 20130627
  Serious: Yes (Other)
  Sender: FDA-Public Use
  Company Number: DE-PFIZER INC-2012318373

PATIENT
  Age: 53 Year
  Sex: Female

DRUGS (1)
  1. SUMATRIPTAN SUCCINATE [Suspect]
     Indication: MIGRAINE
     Dosage: 6 mg, UNK
     Route: 058

REACTIONS (2)
  - Electrocardiogram ST segment depression [Unknown]
  - Chest discomfort [Unknown]
